FAERS Safety Report 14890026 (Version 4)
Quarter: 2018Q3

REPORT INFORMATION
  Report Type: Spontaneous
  Country: US (occurrence: US)
  Receive Date: 20180514
  Receipt Date: 20180720
  Transmission Date: 20181010
  Serious: No
  Sender: FDA-Public Use
  Company Number: US-ASTRAZENECA-2018SE53939

PATIENT
  Sex: Female
  Weight: 86.6 kg

DRUGS (2)
  1. LISINOPRIL. [Suspect]
     Active Substance: LISINOPRIL
     Dosage: UNKNOWN
     Route: 048
  2. BYDUREON BCISE [Suspect]
     Active Substance: EXENATIDE
     Indication: TYPE 2 DIABETES MELLITUS
     Route: 058
     Dates: start: 20180402

REACTIONS (13)
  - Cataract [Unknown]
  - Renal disorder [Unknown]
  - Injection site pain [Unknown]
  - Kidney small [Unknown]
  - Wrong technique in device usage process [Unknown]
  - Injection site nodule [Not Recovered/Not Resolved]
  - Drug dose omission [Unknown]
  - Device defective [Not Recovered/Not Resolved]
  - Weight loss poor [Unknown]
  - Hypoaesthesia [Unknown]
  - Depression [Unknown]
  - Insomnia [Unknown]
  - Tachyphrenia [Unknown]
